FAERS Safety Report 8597534-5 (Version None)
Quarter: 2012Q3

REPORT INFORMATION
  Report Type: 
  Country: None (occurrence: None)
  Receive Date: 20120816
  Receipt Date: 20120808
  Transmission Date: 20120928
  Serious: Yes (Hospitalization, Other)
  Sender: FDA-Public Use
  Company Number: US-BAYER-2011-033744

PATIENT
  Age: 20 Year
  Sex: Female
  Weight: 158.73 kg

DRUGS (2)
  1. YASMIN [Suspect]
     Indication: CONTRACEPTION
     Dosage: UNK
     Dates: start: 20060101, end: 20080101
  2. PERCOCET [Concomitant]

REACTIONS (8)
  - MENSTRUATION IRREGULAR [None]
  - THROMBOSIS [None]
  - PAIN [None]
  - PULMONARY EMBOLISM [None]
  - EMOTIONAL DISTRESS [None]
  - WEIGHT INCREASED [None]
  - CHOLELITHIASIS [None]
  - CHOLECYSTITIS CHRONIC [None]
